FAERS Safety Report 22084753 (Version 5)
Quarter: 2023Q2

REPORT INFORMATION
  Report Type: Report from Study
  Country: US (occurrence: None)
  Receive Date: 20230310
  Receipt Date: 20230613
  Transmission Date: 20230722
  Serious: Yes (Death)
  Sender: FDA-Public Use
  Company Number: US-ROCHE-3303580

PATIENT
  Age: 4 Year
  Sex: Male
  Weight: 16.6 kg

DRUGS (1)
  1. RISDIPLAM [Suspect]
     Active Substance: RISDIPLAM
     Indication: Spinal muscular atrophy
     Dosage: ROUTE - G TUBE?MOST RECENT RISDIPLAM DOSING REGIMEN WAS 5.5 ML OF 0.75MG/ ML SOLUTION
     Route: 065
     Dates: start: 20200109

REACTIONS (1)
  - Death [Fatal]

NARRATIVE: CASE EVENT DATE: 20230304
